FAERS Safety Report 4773620-2 (Version None)
Quarter: 2005Q3

REPORT INFORMATION
  Report Type: 
  Country: None (occurrence: None)
  Receive Date: 20050920
  Receipt Date: 20050908
  Transmission Date: 20060218
  Serious: Yes (Life-Threatening)
  Sender: FDA-Public Use
  Company Number: PHBS2005CA13209

PATIENT
  Age: 15 Year
  Sex: Male

DRUGS (8)
  1. SIMULECT [Suspect]
     Indication: RENAL TRANSPLANT
     Dosage: 16 MG, ONCE/SINGLE
     Route: 042
     Dates: start: 20050828, end: 20050828
  2. REMIFENTANIL [Concomitant]
  3. SOLU-MEDROL [Concomitant]
  4. LASIX [Concomitant]
  5. PROPOFOL [Concomitant]
  6. ROCURONIUM [Concomitant]
  7. DESFLURANE [Concomitant]
  8. EPHEDRINE [Concomitant]

REACTIONS (9)
  - COMPLICATIONS OF TRANSPLANTED KIDNEY [None]
  - COUGH [None]
  - DYSPNOEA [None]
  - HYPERCAPNIA [None]
  - HYPOXIA [None]
  - INTUBATION [None]
  - LIFE SUPPORT [None]
  - LUNG DISORDER [None]
  - LUNG INFILTRATION [None]
